FAERS Safety Report 7971523-3 (Version None)
Quarter: 2011Q4

REPORT INFORMATION
  Report Type: 
  Country: None (occurrence: None)
  Receive Date: 20111212
  Receipt Date: 20111129
  Transmission Date: 20120403
  Serious: Yes (Death, Hospitalization)
  Sender: FDA-Public Use
  Company Number: US-ELI_LILLY_AND_COMPANY-US201111001802

PATIENT
  Age: 72 Year
  Sex: Male

DRUGS (2)
  1. FORTEO [Suspect]
     Dosage: UNK, UNKNOWN
  2. FORTEO [Suspect]
     Dosage: UNK, UNKNOWN

REACTIONS (2)
  - HOSPITALISATION [None]
  - DEATH [None]
